FAERS Safety Report 9517305 (Version 2)
Quarter: 2013Q4

REPORT INFORMATION
  Report Type: Spontaneous
  Country: US (occurrence: US)
  Receive Date: 20130911
  Receipt Date: 20131108
  Transmission Date: 20140711
  Serious: No
  Sender: FDA-Public Use
  Company Number: US-ASTRAZENECA-2013SE60576

PATIENT
  Sex: Female

DRUGS (2)
  1. SYMBICORT [Suspect]
     Indication: ASTHMA
     Dosage: 160/4.5 TWO INHALATIONS BID
     Route: 055
  2. ALBUTEROL [Concomitant]

REACTIONS (3)
  - Wheezing [Unknown]
  - Dyspnoea [Unknown]
  - Intentional drug misuse [Unknown]
